FAERS Safety Report 6019051-9 (Version None)
Quarter: 2008Q4

REPORT INFORMATION
  Report Type: 
  Country: None (occurrence: None)
  Receive Date: 20081224
  Receipt Date: 20081215
  Transmission Date: 20090506
  Serious: Yes (Death, Hospitalization)
  Sender: FDA-Public Use
  Company Number: GB-AVENTIS-200820431GDDC

PATIENT
  Age: 73 Year
  Sex: Male

DRUGS (3)
  1. DOCETAXEL [Suspect]
     Indication: PROSTATE CANCER
     Dosage: DOSE: UNK
     Dates: start: 20080910, end: 20081022
  2. ZOLEDRONIC ACID [Suspect]
     Indication: PROSTATE CANCER
     Dosage: DOSE: UNK
     Dates: start: 20080910, end: 20081022
  3. PREDNISOLONE [Suspect]
     Indication: PROSTATE CANCER
     Dosage: DOSE: UNK
     Dates: end: 20081101

REACTIONS (5)
  - ACUTE RESPIRATORY DISTRESS SYNDROME [None]
  - BRONCHOPNEUMONIA [None]
  - FEBRILE NEUTROPENIA [None]
  - MULTI-ORGAN FAILURE [None]
  - RENAL FAILURE ACUTE [None]
